FAERS Safety Report 24639677 (Version 1)
Quarter: 2024Q4

REPORT INFORMATION
  Report Type: Spontaneous
  Country: IL (occurrence: IL)
  Receive Date: 20241119
  Receipt Date: 20241119
  Transmission Date: 20250115
  Serious: Yes (Other)
  Sender: AMGEN
  Company Number: IL-AMGEN-ISRSP2024222733

PATIENT
  Age: 18 Year

DRUGS (6)
  1. ADALIMUMAB [Suspect]
     Active Substance: ADALIMUMAB
     Indication: Uveitic glaucoma
     Dosage: 40 MILLIGRAM, QWK (PRE-OPERATIVE)
     Route: 065
  2. ADALIMUMAB [Suspect]
     Active Substance: ADALIMUMAB
     Dosage: 40 MILLIGRAM, QWK (POST-OPERATIVE)
     Route: 065
  3. PREDNISOLONE ACETATE [Concomitant]
     Active Substance: PREDNISOLONE ACETATE
     Indication: Uveitic glaucoma
     Dosage: PRE-OPERATIVE
     Route: 065
  4. PREDNISONE [Concomitant]
     Active Substance: PREDNISONE
     Indication: Uveitic glaucoma
     Dosage: 25 MILLIGRAM (PRE-OPERATIVE)
     Route: 065
  5. PREDNISONE [Concomitant]
     Active Substance: PREDNISONE
     Dosage: 7.5 MILLIGRAM (POST OPERATIVE)
     Route: 065
  6. DEXAMETHASONE [Concomitant]
     Active Substance: DEXAMETHASONE
     Indication: Uveitic glaucoma
     Dosage: 0.1 % POST OPERATIVE
     Route: 065

REACTIONS (2)
  - Uveitic glaucoma [Unknown]
  - Off label use [Unknown]
